FAERS Safety Report 5398645-8 (Version None)
Quarter: 2007Q3

REPORT INFORMATION
  Report Type: 
  Country: None (occurrence: None)
  Receive Date: 20070726
  Receipt Date: 20070103
  Transmission Date: 20080115
  Serious: No
  Sender: FDA-Public Use
  Company Number: US-AMGEN-KDL076874

PATIENT
  Sex: Female
  Weight: 67.6 kg

DRUGS (10)
  1. PROCRIT [Suspect]
     Indication: RENAL FAILURE CHRONIC
     Route: 058
     Dates: start: 20040401
  2. ARICEPT [Concomitant]
     Dates: start: 20040227
  3. LISINOPRIL [Concomitant]
     Route: 048
  4. SYNTHROID [Concomitant]
     Route: 048
  5. LOTREL (NOVARTIS PHARMACEUTICALS) [Concomitant]
  6. ASPIRIN [Concomitant]
  7. ESTRACE [Concomitant]
     Route: 061
  8. DETROL [Concomitant]
  9. NORVASC [Concomitant]
  10. METHOTREXATE [Concomitant]
     Dates: start: 20041201

REACTIONS (25)
  - ALOPECIA [None]
  - ASTHENIA [None]
  - BONE PAIN [None]
  - CHROMATURIA [None]
  - CONDITION AGGRAVATED [None]
  - COORDINATION ABNORMAL [None]
  - DEPRESSED MOOD [None]
  - FATIGUE [None]
  - HEADACHE [None]
  - HEART RATE IRREGULAR [None]
  - HYPERTENSION [None]
  - LOCALISED INFECTION [None]
  - MOBILITY DECREASED [None]
  - MYALGIA [None]
  - NAIL DISORDER [None]
  - PALLOR [None]
  - PERIPHERAL VASCULAR DISORDER [None]
  - PHARYNGOLARYNGEAL PAIN [None]
  - PLATELET COUNT DECREASED [None]
  - SLEEP APNOEA SYNDROME [None]
  - SOFT TISSUE DISORDER [None]
  - SPEECH DISORDER [None]
  - VISUAL DISTURBANCE [None]
  - WEIGHT DECREASED [None]
  - WHITE BLOOD CELL COUNT DECREASED [None]
